FAERS Safety Report 18903122 (Version 1)
Quarter: 2021Q1

REPORT INFORMATION
  Report Type: Spontaneous
  Country: US (occurrence: US)
  Receive Date: 20210217
  Receipt Date: 20210217
  Transmission Date: 20210420
  Serious: Yes (Death, Other)
  Sender: FDA-Public Use
  Company Number: US-AMGEN-USASP2021021380

PATIENT

DRUGS (1)
  1. CINACALCET HCL [Suspect]
     Active Substance: CINACALCET HYDROCHLORIDE
     Indication: HYPERPARATHYROIDISM SECONDARY
     Dosage: UNK
     Route: 065

REACTIONS (7)
  - Cardiovascular disorder [Unknown]
  - Transplant failure [Fatal]
  - Death [Fatal]
  - Delayed graft function [Unknown]
  - Hyperparathyroidism tertiary [Unknown]
  - Fracture [Unknown]
  - Kidney transplant rejection [Unknown]
